FAERS Safety Report 16367120 (Version 2)
Quarter: 2019Q3

REPORT INFORMATION
  Report Type: Spontaneous
  Country: CN (occurrence: CN)
  Receive Date: 20190529
  Receipt Date: 20190911
  Transmission Date: 20191004
  Serious: Yes (Death)
  Sender: FDA-Public Use
  Company Number: CN-BAUSCH-BL-2019-015256

PATIENT
  Age: 34 Year
  Sex: Male

DRUGS (5)
  1. DEXAMETHASONE. [Suspect]
     Active Substance: DEXAMETHASONE
     Indication: ANGIOCENTRIC LYMPHOMA
     Dosage: 3 CYCLES
     Route: 065
     Dates: start: 2017
  2. GEMCITABINE. [Suspect]
     Active Substance: GEMCITABINE
     Indication: ANGIOCENTRIC LYMPHOMA
     Dosage: FREQUENCY: 3 CYCLICAL
     Route: 065
     Dates: start: 2017
  3. L-ASPARAGINASE [Suspect]
     Active Substance: ASPARAGINASE
     Indication: ANGIOCENTRIC LYMPHOMA
     Dosage: FREQUENCY: 3 CYCLICAL
     Route: 065
     Dates: start: 2017
  4. METHOTREXATE. [Suspect]
     Active Substance: METHOTREXATE
     Indication: ANGIOCENTRIC LYMPHOMA
     Dosage: FREQUENCY: 3 CYCLICAL
     Route: 065
     Dates: start: 2017
  5. OXALIPLATIN. [Suspect]
     Active Substance: OXALIPLATIN
     Indication: ANGIOCENTRIC LYMPHOMA
     Dosage: FREQUENCY: 3 CYCLICAL
     Route: 065
     Dates: start: 2017

REACTIONS (2)
  - Infection [Fatal]
  - Neutropenia [Fatal]

NARRATIVE: CASE EVENT DATE: 2017
